FAERS Safety Report 13167030 (Version 1)
Quarter: 2017Q1

REPORT INFORMATION
  Report Type: Spontaneous
  Country: US (occurrence: US)
  Receive Date: 20170130
  Receipt Date: 20170130
  Transmission Date: 20170428
  Serious: Yes (Other)
  Sender: FDA-Public Use
  Company Number: None

PATIENT
  Age: 57 Year
  Sex: Male
  Weight: 146.7 kg

DRUGS (2)
  1. FISH OIL [Concomitant]
     Active Substance: FISH OIL
  2. LEVOFLOXACIN. [Suspect]
     Active Substance: LEVOFLOXACIN
     Indication: BACTERIAL INFECTION
     Dosage: ?          QUANTITY:10 TABLET(S);?
     Route: 048
     Dates: start: 20170103, end: 20170109

REACTIONS (6)
  - Dysgeusia [None]
  - Nausea [None]
  - Muscular weakness [None]
  - Night sweats [None]
  - Dyspnoea [None]
  - Decreased appetite [None]

NARRATIVE: CASE EVENT DATE: 20170109
